FAERS Safety Report 20534439 (Version 4)
Quarter: 2022Q2

REPORT INFORMATION
  Report Type: Spontaneous
  Country: US (occurrence: US)
  Receive Date: 20220302
  Receipt Date: 20220616
  Transmission Date: 20220720
  Serious: Yes (Other)
  Sender: FDA-Public Use
  Company Number: US-MMM-MZFSQXRJ

PATIENT

DRUGS (3)
  1. ZEJULA [Suspect]
     Active Substance: NIRAPARIB
     Indication: Ovarian cancer
     Dosage: 300 MG, QD
     Route: 048
     Dates: start: 20220204
  2. ZEJULA [Suspect]
     Active Substance: NIRAPARIB
     Dosage: 300 MG, QD
     Route: 048
  3. ZEJULA [Suspect]
     Active Substance: NIRAPARIB
     Dosage: 300 MG, QD
     Dates: end: 20220425

REACTIONS (7)
  - Malignant neoplasm progression [Unknown]
  - Blood pressure increased [Unknown]
  - Multiple allergies [Unknown]
  - Adverse drug reaction [Unknown]
  - Blood pressure abnormal [Unknown]
  - Fatigue [Unknown]
  - Insomnia [Unknown]
